FAERS Safety Report 13986783 (Version 1)
Quarter: 2017Q3

REPORT INFORMATION
  Report Type: Spontaneous
  Country: GB (occurrence: GB)
  Receive Date: 20170919
  Receipt Date: 20170919
  Transmission Date: 20171128
  Serious: Yes (Life-Threatening)
  Sender: FDA-Public Use
  Company Number: GB-TEVA-805452ACC

PATIENT
  Age: 84 Year
  Sex: Female
  Weight: 68.3 kg

DRUGS (15)
  1. AMITRIPTYLINE HYDROCHLORIDE. [Concomitant]
     Active Substance: AMITRIPTYLINE HYDROCHLORIDE
  2. LISINOPRIL. [Concomitant]
     Active Substance: LISINOPRIL
  3. MOVICOL [Concomitant]
     Active Substance: POLYETHYLENE GLYCOL 3350\POTASSIUM CHLORIDE\SODIUM BICARBONATE\SODIUM CHLORIDE
  4. GAVISCON ADVANCE [Concomitant]
     Active Substance: POTASSIUM BICARBONATE\SODIUM ALGINATE
  5. GTN [Concomitant]
     Active Substance: NITROGLYCERIN
  6. OMEPRAZOLE. [Concomitant]
     Active Substance: OMEPRAZOLE
  7. ZOMORPH [Concomitant]
     Active Substance: MORPHINE SULFATE
  8. DOXAZOSIN MESYLATE. [Suspect]
     Active Substance: DOXAZOSIN MESYLATE
     Indication: HYPERTENSION
     Route: 048
     Dates: start: 20170819, end: 20170820
  9. ORAMORPH [Concomitant]
     Active Substance: MORPHINE SULFATE
  10. CYCLIZINE [Concomitant]
     Active Substance: CYCLIZINE
  11. PARACETAMOL [Concomitant]
     Active Substance: ACETAMINOPHEN
  12. RANITIDINE. [Concomitant]
     Active Substance: RANITIDINE
  13. AMLODIPINE [Concomitant]
     Active Substance: AMLODIPINE BESYLATE
  14. BISOPROLOL [Concomitant]
     Active Substance: BISOPROLOL
  15. INDAPAMIDE HEMIHYDRATE [Concomitant]
     Active Substance: INDAPAMIDE HEMIHYDRATE

REACTIONS (5)
  - Dyspnoea [Unknown]
  - Obstructive airways disorder [Unknown]
  - Speech disorder [Unknown]
  - Swollen tongue [Recovered/Resolved]
  - Angioedema [Unknown]

NARRATIVE: CASE EVENT DATE: 20170821
